FAERS Safety Report 21219486 (Version 2)
Quarter: 2024Q2

REPORT INFORMATION
  Report Type: Report from Study
  Country: BR (occurrence: BR)
  Receive Date: 20220817
  Receipt Date: 20240405
  Transmission Date: 20240716
  Serious: Yes (Disabling, Other)
  Sender: FDA-Public Use
  Company Number: BR-CELLTRION INC.-2022BR012950

PATIENT

DRUGS (5)
  1. INFLIXIMAB [Suspect]
     Active Substance: INFLIXIMAB
     Indication: Rheumatoid arthritis
     Dosage: 3 AMPOLS EVERY 2 MONTHS
     Route: 042
     Dates: start: 20220816
  2. AMLODIPINE BESYLATE [Concomitant]
     Active Substance: AMLODIPINE BESYLATE
     Indication: Hypertension
     Dosage: 1 PILL PER DAY (STARTED 15 DAYS AGO; STILL IN USE)
     Route: 048
  3. LOSARTAN [Concomitant]
     Active Substance: LOSARTAN
     Indication: Hypertension
     Dosage: 1 PILL PER DAY (STARTED APPROXIMATELY 3 YEARS AGO; STILL IN USE)
     Route: 048
  4. OLMESARTAN [Concomitant]
     Active Substance: OLMESARTAN
     Indication: Hypertension
     Dosage: 2 PILLS PER DAY (STARTED A YEAR AGO)
     Route: 048
  5. HYDROCHLOROTHIAZIDE [Concomitant]
     Active Substance: HYDROCHLOROTHIAZIDE
     Indication: Hypertension
     Dosage: 1 PILL PER DAY (STARTED A YEAR AGO)
     Route: 048

REACTIONS (9)
  - Impaired work ability [Unknown]
  - Pain in extremity [Unknown]
  - COVID-19 [Unknown]
  - Malaise [Unknown]
  - Pain [Unknown]
  - Blood pressure increased [Unknown]
  - Peripheral swelling [Unknown]
  - Therapy interrupted [Unknown]
  - Intentional dose omission [Unknown]
